FAERS Safety Report 9494552 (Version 2)
Quarter: 2013Q3

REPORT INFORMATION
  Report Type: Report from Study
  Country: KR (occurrence: KR)
  Receive Date: 20130903
  Receipt Date: 20130904
  Transmission Date: 20140515
  Serious: Yes (Hospitalization)
  Sender: FDA-Public Use
  Company Number: PHHY2013KR095127

PATIENT
  Age: 81 Year
  Sex: Male
  Weight: 52 kg

DRUGS (1)
  1. INDACATEROL [Suspect]
     Indication: CHRONIC OBSTRUCTIVE PULMONARY DISEASE
     Dosage: 300 UG, UNK
     Dates: start: 20130131

REACTIONS (2)
  - Subdural haematoma [Recovered/Resolved]
  - Asthenia [Recovered/Resolved]
